FAERS Safety Report 10055642 (Version 1)
Quarter: 2014Q2

REPORT INFORMATION
  Report Type: Spontaneous
  Country: US (occurrence: None)
  Receive Date: 20140402
  Receipt Date: 20140402
  Transmission Date: 20141212
  Serious: Yes (Other)
  Sender: FDA-Public Use
  Company Number: None

PATIENT
  Age: 16 Year
  Sex: Female
  Weight: 66.4 kg

DRUGS (1)
  1. LORYNA [Suspect]
     Indication: DYSFUNCTIONAL UTERINE BLEEDING
     Dosage: 3MG-20MCG 1 TAB, PO, QD
     Dates: start: 20130826, end: 20140217

REACTIONS (1)
  - Polymenorrhoea [None]
